FAERS Safety Report 22400481 (Version 1)
Quarter: 2023Q2

REPORT INFORMATION
  Report Type: Spontaneous
  Country: US (occurrence: US)
  Receive Date: 20230602
  Receipt Date: 20230602
  Transmission Date: 20230722
  Serious: Yes (Other)
  Sender: FDA-Public Use
  Company Number: US-TEVA-2023-US-2892625

PATIENT

DRUGS (2)
  1. ACYCLOVIR [Suspect]
     Active Substance: ACYCLOVIR
     Indication: Product used for unknown indication
     Route: 065
  2. TRULICITY [Concomitant]
     Active Substance: DULAGLUTIDE
     Indication: Diabetes mellitus

REACTIONS (9)
  - Brain injury [Unknown]
  - Memory impairment [Unknown]
  - Wheelchair user [Unknown]
  - Fatigue [Unknown]
  - Mental fatigue [Unknown]
  - Head injury [Unknown]
  - Adverse drug reaction [Unknown]
  - Product dose omission in error [Unknown]
  - Oxygen therapy [Unknown]
